FAERS Safety Report 4536232-1 (Version None)
Quarter: 2004Q4

REPORT INFORMATION
  Report Type: 
  Country: None (occurrence: None)
  Receive Date: 20041223
  Receipt Date: 20040504
  Transmission Date: 20050328
  Serious: No
  Sender: FDA-Public Use
  Company Number: US-GLAXOSMITHKLINE-A0509460A

PATIENT
  Age: 47 Year
  Sex: Female

DRUGS (2)
  1. FLONASE [Suspect]
     Dosage: 4SPR PER DAY
     Route: 045
     Dates: end: 20040404
  2. CLARITIN-D [Concomitant]

REACTIONS (1)
  - COELIAC DISEASE [None]
